FAERS Safety Report 10580210 (Version 3)
Quarter: 2016Q3

REPORT INFORMATION
  Report Type: Report from Study
  Country: US (occurrence: US)
  Receive Date: 20141112
  Receipt Date: 20160902
  Transmission Date: 20161109
  Serious: Yes (Hospitalization, Other)
  Sender: FDA-Public Use
  Company Number: US-ARIAD-2013US003581

PATIENT

DRUGS (7)
  1. ICLUSIG [Suspect]
     Active Substance: PONATINIB
     Indication: CHRONIC MYELOID LEUKAEMIA
     Dosage: 45 MG, QD
     Route: 048
     Dates: start: 20130725, end: 20130910
  2. LOVENOX [Concomitant]
     Active Substance: ENOXAPARIN SODIUM
     Indication: MITRAL VALVE REPLACEMENT
  3. LOSARTAN. [Concomitant]
     Active Substance: LOSARTAN
     Indication: HYPERTENSION
     Dosage: 25 MG, QD
  4. NEURONTIN [Concomitant]
     Active Substance: GABAPENTIN
     Indication: NEUROPATHY PERIPHERAL
     Dosage: 900 MG, TID
  5. CASPOFUNGIN [Concomitant]
     Active Substance: CASPOFUNGIN
     Indication: ANTIFUNGAL PROPHYLAXIS
  6. VALACYCLOVIR HYDROCHLORIDE. [Concomitant]
     Active Substance: VALACYCLOVIR HYDROCHLORIDE
     Indication: ANTIVIRAL PROPHYLAXIS
  7. DAPSONE. [Concomitant]
     Active Substance: DAPSONE
     Indication: PNEUMOCYSTIS JIROVECII PNEUMONIA

REACTIONS (16)
  - Cerebrovascular accident [Unknown]
  - Dysphonia [Unknown]
  - Oropharyngeal pain [Unknown]
  - Generalised tonic-clonic seizure [Unknown]
  - Aphasia [Unknown]
  - Memory impairment [Unknown]
  - Neoplasm progression [Not Recovered/Not Resolved]
  - Meningitis bacterial [Unknown]
  - Pulmonary mass [Unknown]
  - Bacillus bacteraemia [Unknown]
  - Malaise [Unknown]
  - Febrile neutropenia [Unknown]
  - CSF protein increased [Unknown]
  - Blast cell crisis [Recovered/Resolved]
  - Cardiac valve vegetation [Unknown]
  - Productive cough [Unknown]

NARRATIVE: CASE EVENT DATE: 201309
